FAERS Safety Report 13832280 (Version 1)
Quarter: 2017Q3

REPORT INFORMATION
  Report Type: Spontaneous
  Country: US (occurrence: US)
  Receive Date: 20170803
  Receipt Date: 20170803
  Transmission Date: 20171127
  Serious: Yes (Hospitalization)
  Sender: FDA-Public Use
  Company Number: None

PATIENT
  Age: 58 Year
  Sex: Male

DRUGS (13)
  1. SPIRONOLACTONE. [Concomitant]
     Active Substance: SPIRONOLACTONE
  2. ALLOPURINOL. [Concomitant]
     Active Substance: ALLOPURINOL
  3. MIDODRINE [Concomitant]
     Active Substance: MIDODRINE
  4. PRAVASTATIN. [Concomitant]
     Active Substance: PRAVASTATIN
  5. HYDROXYZ [Concomitant]
     Active Substance: HYDROXYZINE HYDROCHLORIDE
  6. ISOSORBIDE. [Concomitant]
     Active Substance: ISOSORBIDE
  7. TRAMADOL. [Concomitant]
     Active Substance: TRAMADOL
  8. ASPIRIN. [Concomitant]
     Active Substance: ASPIRIN
  9. CIPROFLOXACN [Concomitant]
     Active Substance: CIPROFLOXACIN
  10. HARVONI [Suspect]
     Active Substance: LEDIPASVIR\SOFOSBUVIR
     Indication: CHRONIC HEPATITIS C
     Route: 048
     Dates: start: 20170615
  11. FUROSEMIDE. [Concomitant]
     Active Substance: FUROSEMIDE
  12. LACTULOSE. [Concomitant]
     Active Substance: LACTULOSE
  13. XIFAXAN [Concomitant]
     Active Substance: RIFAXIMIN

REACTIONS (2)
  - Dialysis [None]
  - Renal failure [None]

NARRATIVE: CASE EVENT DATE: 2017
